FAERS Safety Report 19873930 (Version 2)
Quarter: 2021Q3

REPORT INFORMATION
  Report Type: Spontaneous
  Country: AU (occurrence: AU)
  Receive Date: 20210922
  Receipt Date: 20210925
  Transmission Date: 20211014
  Serious: Yes (Hospitalization, Other)
  Sender: FDA-Public Use
  Company Number: AU-REGENERON PHARMACEUTICALS, INC.-2021-87179

PATIENT

DRUGS (7)
  1. ATORVASTATIN [Concomitant]
     Active Substance: ATORVASTATIN
     Indication: BLOOD CHOLESTEROL INCREASED
     Dosage: 20 MG, QD, START DATE: YEARS
     Route: 048
     Dates: end: 20210916
  2. METOCLOPRAMIDE. [Concomitant]
     Active Substance: METOCLOPRAMIDE
     Indication: NAUSEA
     Dosage: 10 MG,TDS? PRN, START DATE: 1 MONTH
     Route: 048
  3. RAMIPRIL. [Concomitant]
     Active Substance: RAMIPRIL
     Indication: HYPERTENSION
     Dosage: 5 MG, START DATE: YEARS
     Route: 048
  4. METOCLOPRAMIDE. [Concomitant]
     Active Substance: METOCLOPRAMIDE
     Indication: VOMITING
  5. LIBTAYO [Suspect]
     Active Substance: CEMIPLIMAB-RWLC
     Indication: METASTATIC SQUAMOUS CELL CARCINOMA
     Dosage: 350 MG, Q3W, LAST DOSE: C2 27?AUG?2021
     Route: 065
     Dates: start: 20210806, end: 20210827
  6. LOPERAMIDE [Concomitant]
     Active Substance: LOPERAMIDE
     Indication: DIARRHOEA
     Dosage: 2 MG, PRN, START DATE: 1 MONTH
     Route: 048
  7. ENDONE [Concomitant]
     Active Substance: OXYCODONE HYDROCHLORIDE
     Indication: PAIN
     Dosage: 5MG PRN Q2H (EVERY 2 HOURS), START DATE: MONTHS
     Route: 048

REACTIONS (9)
  - Nausea [Recovering/Resolving]
  - Immune-mediated enterocolitis [Recovering/Resolving]
  - Cough [Recovering/Resolving]
  - Viral infection [Recovering/Resolving]
  - Vomiting [Recovering/Resolving]
  - Immune-mediated hepatitis [Recovering/Resolving]
  - Pyrexia [Recovering/Resolving]
  - Liver function test abnormal [Recovering/Resolving]
  - Diarrhoea [Recovering/Resolving]

NARRATIVE: CASE EVENT DATE: 20210909
